FAERS Safety Report 12547229 (Version 1)
Quarter: 2016Q3

REPORT INFORMATION
  Report Type: Spontaneous
  Country: None (occurrence: US)
  Receive Date: 20160711
  Receipt Date: 20160711
  Transmission Date: 20161109
  Serious: No
  Sender: FDA-Public Use
  Company Number: US-RARE DISEASE THERAPEUTICS, INC.-1054905

PATIENT
  Age: 22 Year
  Sex: Male
  Weight: 84 kg

DRUGS (3)
  1. ASPIRIN. [Concomitant]
     Active Substance: ASPIRIN
  2. MULTIVITAMINS [Concomitant]
     Active Substance: VITAMINS
  3. CYSTADANE [Suspect]
     Active Substance: BETAINE
     Indication: HOMOCYSTINURIA
     Dates: start: 2006

REACTIONS (3)
  - Prescribed overdose [None]
  - Treatment noncompliance [None]
  - Depression [Not Recovered/Not Resolved]
